FAERS Safety Report 5241612-5 (Version None)
Quarter: 2007Q1

REPORT INFORMATION
  Report Type: 
  Country: None (occurrence: None)
  Receive Date: 20070215
  Receipt Date: 20070215
  Transmission Date: 20070707
  Serious: Yes (Other)
  Sender: FDA-Public Use
  Company Number: None

PATIENT
  Age: 29 Year
  Sex: Female
  Weight: 88.4514 kg

DRUGS (2)
  1. TRAMADOL HCL [Suspect]
     Indication: ARTHRALGIA
     Dosage: 200MG  Q6-8HRS PRN  PO
     Route: 048
     Dates: start: 20070212, end: 20070214
  2. TRAMADOL HCL [Suspect]
     Indication: BACK PAIN
     Dosage: 200MG  Q6-8HRS PRN  PO
     Route: 048
     Dates: start: 20070212, end: 20070214

REACTIONS (9)
  - ANXIETY [None]
  - CHEST PAIN [None]
  - CONTUSION [None]
  - DRY MOUTH [None]
  - DYSPNOEA [None]
  - HALLUCINATION, AUDITORY [None]
  - HALLUCINATION, VISUAL [None]
  - NAUSEA [None]
  - TREMOR [None]
